FAERS Safety Report 9327953 (Version 2)
Quarter: 2013Q3

REPORT INFORMATION
  Report Type: Spontaneous
  Country: IT (occurrence: IT)
  Receive Date: 20130604
  Receipt Date: 20130815
  Transmission Date: 20140515
  Serious: Yes (Disabling, Other)
  Sender: FDA-Public Use
  Company Number: IT-009507513-1305ITA017087

PATIENT
  Age: 77 Year
  Sex: Female

DRUGS (5)
  1. ALENDROS [Suspect]
     Indication: OSTEOPOROSIS
     Dosage: 1 TABLET WEEKLY
     Route: 048
     Dates: start: 2005, end: 201211
  2. ALENDROS [Suspect]
     Dosage: 1 TABLET WEEKLY
     Route: 048
     Dates: start: 1998, end: 2000
  3. NORVASC [Concomitant]
     Dosage: UNK
     Dates: start: 2010
  4. OLPREZIDE [Concomitant]
     Dosage: UNKNOWN
     Dates: start: 2010
  5. LIMPIDEX [Concomitant]
     Dosage: AS NEEDED

REACTIONS (1)
  - Osteonecrosis [Unknown]
